FAERS Safety Report 19502616 (Version 1)
Quarter: 2021Q3

REPORT INFORMATION
  Report Type: Spontaneous
  Country: JP (occurrence: JP)
  Receive Date: 20210707
  Receipt Date: 20210707
  Transmission Date: 20211014
  Serious: Yes (Other)
  Sender: FDA-Public Use
  Company Number: JP-TAKEDA-2021TUS042101

PATIENT
  Age: 52 Year
  Sex: Male
  Weight: 51 kg

DRUGS (3)
  1. LIALDA [Suspect]
     Active Substance: MESALAMINE
     Indication: COLITIS ULCERATIVE
     Dosage: 4800 MILLIGRAM, QD
     Route: 048
     Dates: start: 20190831
  2. PENTASA [Concomitant]
     Active Substance: MESALAMINE
     Indication: COLITIS ULCERATIVE
     Dosage: 1 DOSAGE FORM, QD
     Route: 065
     Dates: start: 20190913
  3. PENTASA [Concomitant]
     Active Substance: MESALAMINE
     Dosage: 0.05 DOSAGE FORM, QD
     Route: 065
     Dates: start: 20200328

REACTIONS (1)
  - Enteritis infectious [Recovered/Resolved]

NARRATIVE: CASE EVENT DATE: 20200702
